FAERS Safety Report 17370394 (Version 1)
Quarter: 2020Q1

REPORT INFORMATION
  Report Type: Spontaneous
  Country: ES (occurrence: ES)
  Receive Date: 20200205
  Receipt Date: 20200205
  Transmission Date: 20200409
  Serious: Yes (Other)
  Sender: FDA-Public Use
  Company Number: ES-BAUSCH-BL-2020-002967

PATIENT
  Age: 71 Year
  Sex: Female

DRUGS (10)
  1. GENTAMICIN. [Suspect]
     Active Substance: GENTAMICIN
     Indication: RESPIRATORY FAILURE
     Route: 065
  2. GENTAMICIN. [Suspect]
     Active Substance: GENTAMICIN
     Indication: BACTERAEMIA
     Route: 065
  3. ENOXAPARIN [Concomitant]
     Active Substance: ENOXAPARIN
     Indication: PRODUCT USED FOR UNKNOWN INDICATION
     Route: 058
     Dates: start: 20140920
  4. CEFTAZIDIME PENTAHYDRATE, AVIBACTAM SODIUM [Suspect]
     Active Substance: AVIBACTAM SODIUM\CEFTAZIDIME
     Indication: BACTERAEMIA
     Route: 065
  5. AMIODARONE [Concomitant]
     Active Substance: AMIODARONE
     Indication: PRODUCT USED FOR UNKNOWN INDICATION
     Route: 048
     Dates: start: 20140920
  6. CEFTAZIDIME PENTAHYDRATE, AVIBACTAM SODIUM [Suspect]
     Active Substance: AVIBACTAM SODIUM\CEFTAZIDIME
     Indication: PANCREATITIS
     Dosage: 6 G IN ONE DAY
     Route: 065
     Dates: start: 20140915, end: 20140929
  7. FUROSEMIDE. [Concomitant]
     Active Substance: FUROSEMIDE
     Indication: PRODUCT USED FOR UNKNOWN INDICATION
     Route: 048
     Dates: start: 20140920, end: 20141010
  8. GENTAMICIN. [Suspect]
     Active Substance: GENTAMICIN
     Indication: PANCREATITIS
     Dosage: 400 MG, EVERY 36 HOURS
     Route: 065
     Dates: start: 20140920, end: 20140929
  9. CEFTAZIDIME PENTAHYDRATE, AVIBACTAM SODIUM [Suspect]
     Active Substance: AVIBACTAM SODIUM\CEFTAZIDIME
     Indication: RESPIRATORY FAILURE
     Route: 065
  10. IPRATROPIUM [Concomitant]
     Active Substance: IPRATROPIUM
     Indication: PRODUCT USED FOR UNKNOWN INDICATION
     Route: 055
     Dates: start: 20140920, end: 20140924

REACTIONS (2)
  - Treatment failure [Recovered/Resolved with Sequelae]
  - Pathogen resistance [Unknown]

NARRATIVE: CASE EVENT DATE: 20140925
